FAERS Safety Report 24874374 (Version 1)
Quarter: 2025Q1

REPORT INFORMATION
  Report Type: Spontaneous
  Country: US (occurrence: None)
  Receive Date: 20250122
  Receipt Date: 20250122
  Transmission Date: 20250409
  Serious: No
  Sender: FDA-CTU
  Company Number: None

PATIENT

DRUGS (3)
  1. FEMARA [Suspect]
     Active Substance: LETROZOLE
  2. IBRANCE [Suspect]
     Active Substance: PALBOCICLIB
  3. VERZENIO [Suspect]
     Active Substance: ABEMACICLIB

REACTIONS (2)
  - Drug intolerance [None]
  - Hepatic enzyme increased [None]
